FAERS Safety Report 24086471 (Version 1)
Quarter: 2024Q3

REPORT INFORMATION
  Report Type: Spontaneous
  Country: CZ (occurrence: CZ)
  Receive Date: 20240712
  Receipt Date: 20240712
  Transmission Date: 20241017
  Serious: Yes (Death)
  Sender: ABBVIE
  Company Number: CZ-ABBVIE-5836682

PATIENT
  Age: 73 Year
  Sex: Male

DRUGS (8)
  1. CARBIDOPA\LEVODOPA [Suspect]
     Active Substance: CARBIDOPA\LEVODOPA
     Indication: Parkinson^s disease
     Dosage: MORNING DOSE 12 MG/ML, CONTINUOUS DOSE 6.2 ML/HOUR (FROM 6 AM TO 10 PM), EXTRA DOSE 2.5 ML. FORM ...
     Route: 050
     Dates: start: 20190524, end: 20240707
  2. CARBIDOPA\LEVODOPA [Suspect]
     Active Substance: CARBIDOPA\LEVODOPA
  3. PROPRANOLOL [Concomitant]
     Active Substance: PROPRANOLOL HYDROCHLORIDE
     Indication: Parkinson^s disease
     Dosage: FREQUENCY TEXT: 1-1-0. FORM STRENGTH: 20 MG
     Route: 048
     Dates: start: 20190227, end: 20240707
  4. BISEPTOL [Concomitant]
     Active Substance: SULFAMETHOXAZOLE\TRIMETHOPRIM
     Indication: Urinary tract infection
     Dosage: FREQUENCY TEXT: 0-0-0-1
     Route: 048
     Dates: start: 20210324, end: 20240707
  5. BENSERAZIDE HYDROCHLORIDE\LEVODOPA [Concomitant]
     Active Substance: BENSERAZIDE HYDROCHLORIDE\LEVODOPA
     Indication: Parkinson^s disease
     Dosage: FREQUENCY TEXT: 0-0-0-1, FORM STRENGTH: 100 MG
     Route: 048
     Dates: start: 20240409, end: 20240707
  6. PK-MERZ [Concomitant]
     Active Substance: AMANTADINE
     Indication: Parkinson^s disease
     Dosage: FREQUENCY TEXT: 4 X 1, FORM STRENGTH: 100 MG
     Route: 048
     Dates: start: 20190227, end: 20240707
  7. RIVOTRIL [Concomitant]
     Active Substance: CLONAZEPAM
     Indication: Parkinson^s disease
     Dosage: FREQUENCY TEXT: 0-0-1. FORM STRENGTH: 0.5 MG
     Route: 048
     Dates: start: 20210324, end: 20240707
  8. SERTRALINE HYDROCHLORIDE [Concomitant]
     Active Substance: SERTRALINE HYDROCHLORIDE
     Indication: Depression
     Dosage: FREQUENCY TEXT: 1-0-0
     Route: 048
     Dates: start: 20190227, end: 20240707

REACTIONS (1)
  - Death [Fatal]

NARRATIVE: CASE EVENT DATE: 20240707
